FAERS Safety Report 18766964 (Version 2)
Quarter: 2021Q4

REPORT INFORMATION
  Report Type: Report from Study
  Country: US (occurrence: None)
  Receive Date: 20210121
  Receipt Date: 20211214
  Transmission Date: 20220303
  Serious: Yes (Other)
  Sender: FDA-Public Use
  Company Number: US-MERCK HEALTHCARE KGAA-9212649

PATIENT
  Age: 72 Year
  Sex: Female

DRUGS (1)
  1. REBIF [Suspect]
     Active Substance: INTERFERON BETA-1A
     Indication: Multiple sclerosis
     Dosage: REBIF PREFILLED SYRINGE AND PREVIOUSLY: REBIJECT LL
     Route: 058
     Dates: start: 20090108

REACTIONS (3)
  - Cerebrovascular accident [Unknown]
  - Single functional kidney [Unknown]
  - Stent placement [Unknown]

NARRATIVE: CASE EVENT DATE: 20210101
